FAERS Safety Report 7029675 (Version 17)
Quarter: 2012Q4

REPORT INFORMATION
  Report Type: 
  Country: CA (occurrence: CA)
  Receive Date: 20090622
  Receipt Date: 20121111
  Transmission Date: 20130627
  Serious: Yes (Other)
  Sender: FDA-Public Use
  Company Number: PHHY2009CA19391

PATIENT
  Sex: Male

DRUGS (2)
  1. SANDOSTATIN LAR [Suspect]
     Indication: HEPATIC NEOPLASM MALIGNANT
     Dosage: 20 mg, UNK
     Route: 030
     Dates: start: 20030521
  2. SANDOSTATIN LAR [Suspect]
     Dosage: 20 mg, QMO
     Route: 030

REACTIONS (4)
  - Blood pressure systolic increased [Unknown]
  - Blood pressure diastolic decreased [Unknown]
  - Hyperglycaemia [Unknown]
  - Heart rate decreased [Unknown]
